FAERS Safety Report 14296530 (Version 1)
Quarter: 2017Q4

REPORT INFORMATION
  Report Type: Spontaneous
  Country: ES (occurrence: ES)
  Receive Date: 20171218
  Receipt Date: 20171218
  Transmission Date: 20180321
  Serious: Yes (Other)
  Sender: FDA-Public Use
  Company Number: ES-AUROBINDO-AUR-APL-2017-45485

PATIENT
  Age: 76 Year
  Sex: Female

DRUGS (4)
  1. SINEMET PLUS [Interacting]
     Active Substance: CARBIDOPA\LEVODOPA
     Indication: PRODUCT USED FOR UNKNOWN INDICATION
     Dosage: 2 DF, UNK
     Dates: start: 20171018, end: 20171018
  2. TRAMADOL+PARACETAMOL [Suspect]
     Active Substance: ACETAMINOPHEN\TRAMADOL
     Indication: PRODUCT USED FOR UNKNOWN INDICATION
     Dosage: 2 DF, UNK
     Dates: start: 20171018, end: 20171018
  3. NEURONTIN [Interacting]
     Active Substance: GABAPENTIN
     Indication: PRODUCT USED FOR UNKNOWN INDICATION
     Dosage: 1200 MG, UNK
     Dates: start: 20171018, end: 20171018
  4. RASAGILINA [Interacting]
     Active Substance: RASAGILINE
     Indication: PRODUCT USED FOR UNKNOWN INDICATION
     Dosage: 1 MG, UNK
     Dates: start: 20171018, end: 20171018

REACTIONS (3)
  - Vomiting [Recovered/Resolved]
  - Dyskinesia [Recovered/Resolved]
  - Wrong patient received medication [Recovered/Resolved]

NARRATIVE: CASE EVENT DATE: 20171018
